FAERS Safety Report 15769082 (Version 1)
Quarter: 2018Q4

REPORT INFORMATION
  Report Type: Spontaneous
  Country: US (occurrence: US)
  Receive Date: 20181228
  Receipt Date: 20181228
  Transmission Date: 20190205
  Serious: No
  Sender: FDA-Public Use
  Company Number: US-JNJFOC-20181139778

PATIENT
  Sex: Female

DRUGS (19)
  1. VITAMIN D3 [Concomitant]
     Active Substance: CHOLECALCIFEROL
     Route: 048
  2. METOPROLOL SUCCINATE. [Concomitant]
     Active Substance: METOPROLOL SUCCINATE
     Route: 048
  3. ALBUTEROL. [Concomitant]
     Active Substance: ALBUTEROL
     Dosage: 2.5 MG/3 ML (0.083%) NEBULIZER SOLUTION, USE 1 UNIT DOSE IN NEBULIZER EVERY 4 HOURS
  4. LASIX [Concomitant]
     Active Substance: FUROSEMIDE
     Route: 048
  5. IMBRUVICA [Suspect]
     Active Substance: IBRUTINIB
     Indication: PRODUCT USED FOR UNKNOWN INDICATION
     Route: 048
  6. PROZAC [Concomitant]
     Active Substance: FLUOXETINE HYDROCHLORIDE
     Dosage: 20 MG, TID, TAKE THREE CAPSULE DAILY
  7. NIZORAL [Concomitant]
     Active Substance: KETOCONAZOLE
     Route: 061
  8. ATIVAN [Concomitant]
     Active Substance: LORAZEPAM
     Indication: ANXIETY
     Dosage: 0.5 MG, BID, FOR UP TO 10 DAYS
     Route: 048
  9. HUMALOG [Concomitant]
     Active Substance: INSULIN LISPRO
     Dosage: 100 UNIT/ML
  10. PROAIR HFA [Concomitant]
     Active Substance: ALBUTEROL SULFATE
     Dosage: 90 MCG/ACTUATION INHALER, INHALE 2 PUFFS EVERY 4-6 HOURS
  11. DUONEB [Concomitant]
     Active Substance: ALBUTEROL SULFATE\IPRATROPIUM BROMIDE
     Dosage: 0.5-2.5 MG/3 ML NEBULIZER SOLUTION
  12. MYCOSTATIN [Concomitant]
     Active Substance: NYSTATIN
     Dosage: 100,000 UNIT/GRAM POWDER, APPLY TOPICALLY FOUR TIMES A DAY
     Route: 061
  13. PERCOCET [Concomitant]
     Active Substance: ACETAMINOPHEN\OXYCODONE HYDROCHLORIDE
     Dosage: 5-325 MG PER TABLET, TAKE ONE TABLET BY MOUTH EVERY EIGHT HOURS AS NEEDE (PAIN). PEN NEEDLE
     Route: 048
  14. LAMISIL [Concomitant]
     Active Substance: TERBINAFINE HYDROCHLORIDE
     Dosage: 250 MG, QD, TRAVELING FOR TWO MONTHS (2 MONTHS SUPPLY)
     Route: 048
  15. ZYLOPRIM [Concomitant]
     Active Substance: ALLOPURINOL
     Route: 048
  16. ZYLOPRIM [Concomitant]
     Active Substance: ALLOPURINOL
     Route: 048
  17. DIFLUCAN [Concomitant]
     Active Substance: FLUCONAZOLE
     Dosage: 200 MG, QD, TAKE 1 TABLET DAILY
     Route: 065
  18. MYCOSTATIN [Concomitant]
     Active Substance: NYSTATIN
     Dosage: 100,000 UNIT/GRAM POWDER, APPLY TOPICALLY FOUR TIMES A DAY
     Route: 061
  19. INSULIN GLARGINE [Concomitant]
     Active Substance: INSULIN GLARGINE
     Dosage: 100 UNIT/ML (3 ML) INSULIN PEN, INJECT 55 UNITS UNDER THE SKIN ONCE DAILY

REACTIONS (1)
  - Mouth swelling [Unknown]
